FAERS Safety Report 5208891-1 (Version None)
Quarter: 2007Q1

REPORT INFORMATION
  Report Type: 
  Country: None (occurrence: None)
  Receive Date: 20070111
  Receipt Date: 20070111
  Transmission Date: 20070707
  Serious: Yes (Other)
  Sender: FDA-Public Use
  Company Number: None

PATIENT
  Age: 35 Year
  Sex: Male
  Weight: 70.3075 kg

DRUGS (1)
  1. PHENERGAN [Suspect]
     Indication: NAUSEA
     Dosage: EVERY 6 HOURS   IV
     Route: 042
     Dates: start: 20061220, end: 20061224

REACTIONS (5)
  - IMPAIRED WORK ABILITY [None]
  - INJECTION SITE IRRITATION [None]
  - INJECTION SITE PAIN [None]
  - THROMBOPHLEBITIS SUPERFICIAL [None]
  - WRONG TECHNIQUE IN DRUG USAGE PROCESS [None]
